FAERS Safety Report 22811447 (Version 2)
Quarter: 2023Q4

REPORT INFORMATION
  Report Type: Spontaneous
  Country: US (occurrence: US)
  Receive Date: 20230810
  Receipt Date: 20231101
  Transmission Date: 20240110
  Serious: No
  Sender: FDA-Public Use
  Company Number: US-AIMMUNE THERAPEUTICS, INC.-2023AIMT00721

PATIENT

DRUGS (15)
  1. VOWST [Suspect]
     Active Substance: DONOR HUMAN STOOL SPORES (ETHANOL TREATED)
     Indication: Clostridium difficile infection
     Dosage: UNK
     Route: 048
     Dates: start: 20230723
  2. VOWST [Suspect]
     Active Substance: DONOR HUMAN STOOL SPORES (ETHANOL TREATED)
     Dosage: UNK, LAST DOSE PRIOR EVENT
     Route: 048
     Dates: start: 20230724, end: 20230724
  3. METHENAMINE [Concomitant]
     Active Substance: METHENAMINE
     Indication: Urinary tract disorder prophylaxis
     Dosage: 1 G
  4. VITAMIN C [Concomitant]
     Active Substance: ASCORBIC ACID
     Indication: Product used for unknown indication
     Dosage: 250 MG, 2 TABLETS,  2X/DAY
  5. DILTIAZEM [Concomitant]
     Active Substance: DILTIAZEM
     Indication: Hypertension
     Dosage: 120 MG
  6. ELIQUIS [Concomitant]
     Active Substance: APIXABAN
     Indication: Product used for unknown indication
     Dosage: 2.5 MG, 2X/DAY
  7. ARAVA [Concomitant]
     Active Substance: LEFLUNOMIDE
     Indication: Rheumatoid arthritis
     Dosage: 20 MG
  8. PLAQUENIL [Concomitant]
     Active Substance: HYDROXYCHLOROQUINE SULFATE
     Indication: Rheumatoid arthritis
     Dosage: 200 MG
  9. KLOR-CON [Concomitant]
     Active Substance: POTASSIUM CHLORIDE
     Indication: Product used for unknown indication
  10. D MANNOSE [Concomitant]
     Indication: Urinary tract disorder prophylaxis
     Dosage: 500 MG
  11. ATIVAN [Concomitant]
     Active Substance: LORAZEPAM
     Indication: Product used for unknown indication
     Dosage: 1 MG, 1X/DAY
  12. NORTRIPTYLINE [Concomitant]
     Active Substance: NORTRIPTYLINE
     Indication: Product used for unknown indication
     Dosage: 20 MG
  13. MIRTAZAPINE [Concomitant]
     Active Substance: MIRTAZAPINE
     Indication: Appetite disorder
     Dosage: 7.5 MG
  14. LEVOTHYROXINE [Concomitant]
     Active Substance: LEVOTHYROXINE
     Indication: Thyroid disorder
     Dosage: 1TABL, 1X/DAY
  15. TYLENOL [Concomitant]
     Active Substance: ACETAMINOPHEN
     Indication: Rheumatoid arthritis
     Dosage: 1 500 MG TABLET AT LUNCH, 2 500 MG

REACTIONS (4)
  - Abdominal pain [Not Recovered/Not Resolved]
  - Chills [Not Recovered/Not Resolved]
  - Diarrhoea [Not Recovered/Not Resolved]
  - Fatigue [Not Recovered/Not Resolved]

NARRATIVE: CASE EVENT DATE: 20230724
